FAERS Safety Report 22006717 (Version 1)
Quarter: 2023Q1

REPORT INFORMATION
  Report Type: Spontaneous
  Country: CA (occurrence: CA)
  Receive Date: 20230217
  Receipt Date: 20230217
  Transmission Date: 20230417
  Serious: Yes (Other)
  Sender: FDA-Public Use
  Company Number: CA-FreseniusKabi-FK202301786

PATIENT
  Age: 9 Year
  Sex: Male

DRUGS (15)
  1. ETOPOSIDE [Suspect]
     Active Substance: ETOPOSIDE
     Indication: Acute myeloid leukaemia
     Route: 065
  2. FLUDARABINE [Suspect]
     Active Substance: FLUDARABINE PHOSPHATE
     Indication: Acute myeloid leukaemia
     Route: 065
  3. BUSULFAN [Suspect]
     Active Substance: BUSULFAN
     Indication: Acute myeloid leukaemia
     Route: 065
  4. CYCLOPHOSPHAMIDE [Suspect]
     Active Substance: CYCLOPHOSPHAMIDE
     Indication: Acute myeloid leukaemia
     Route: 065
  5. CYTARABINE [Suspect]
     Active Substance: CYTARABINE
     Indication: Acute myeloid leukaemia
     Route: 037
  6. CYTARABINE [Suspect]
     Active Substance: CYTARABINE
     Dosage: POWDER FOR SOLUTION INTRATHECAL
  7. CYTARABINE [Suspect]
     Active Substance: CYTARABINE
     Route: 065
  8. DAUNORUBICIN [Suspect]
     Active Substance: DAUNORUBICIN
     Indication: Acute myeloid leukaemia
     Route: 065
  9. FILGRASTIM [Suspect]
     Active Substance: FILGRASTIM
     Indication: Acute myeloid leukaemia
     Route: 065
  10. RYDAPT [Suspect]
     Active Substance: MIDOSTAURIN
     Indication: Acute myeloid leukaemia
     Route: 048
  11. RYDAPT [Suspect]
     Active Substance: MIDOSTAURIN
     Route: 048
  12. RYDAPT [Suspect]
     Active Substance: MIDOSTAURIN
     Route: 048
  13. SORAFENIB [Suspect]
     Active Substance: SORAFENIB
     Indication: Acute myeloid leukaemia
     Route: 065
  14. SORAFENIB [Suspect]
     Active Substance: SORAFENIB
     Route: 065
  15. THYMOGLOBULIN [Suspect]
     Active Substance: LAPINE T-LYMPHOCYTE IMMUNE GLOBULIN
     Indication: Acute myeloid leukaemia
     Dosage: POWDER FOR SOLUTION INTRAVENOUS
     Route: 042

REACTIONS (6)
  - Drug intolerance [Recovered/Resolved with Sequelae]
  - Lymphadenopathy [Recovered/Resolved with Sequelae]
  - Skin toxicity [Recovered/Resolved with Sequelae]
  - Bone marrow failure [Recovered/Resolved with Sequelae]
  - Myelosuppression [Recovered/Resolved with Sequelae]
  - Pancytopenia [Recovered/Resolved with Sequelae]
